FAERS Safety Report 6753885-8 (Version None)
Quarter: 2010Q2

REPORT INFORMATION
  Report Type: 
  Country: None (occurrence: None)
  Receive Date: 20100603
  Receipt Date: 20100526
  Transmission Date: 20101027
  Serious: Yes (Other)
  Sender: FDA-Public Use
  Company Number: US-ASTRAZENECA-2010SE24413

PATIENT
  Age: 55 Year
  Sex: Male
  Weight: 93 kg

DRUGS (5)
  1. NEXIUM [Suspect]
     Indication: GASTROOESOPHAGEAL REFLUX DISEASE
     Route: 048
     Dates: start: 20050101
  2. GOODYS HEADACHE REMEDY [Concomitant]
     Indication: HEADACHE
  3. TESTOSTERONE [Concomitant]
  4. MIDRIN [Concomitant]
     Indication: HEADACHE
  5. PREVACID [Concomitant]

REACTIONS (5)
  - BLOOD TESTOSTERONE DECREASED [None]
  - BONE DENSITY DECREASED [None]
  - HEADACHE [None]
  - MULTIPLE SCLEROSIS [None]
  - NEURALGIA [None]
